FAERS Safety Report 8194495-8 (Version None)
Quarter: 2012Q1

REPORT INFORMATION
  Report Type: 
  Country: None (occurrence: None)
  Receive Date: 20120308
  Receipt Date: 20110329
  Transmission Date: 20120608
  Serious: No
  Sender: FDA-Public Use
  Company Number: US-GLAXOSMITHKLINE-A0920528A

PATIENT
  Age: 37 Year
  Sex: Male

DRUGS (2)
  1. NICOTINE POLACRILEX [Suspect]
  2. NICORETTE [Suspect]

REACTIONS (5)
  - EXPIRED DRUG ADMINISTERED [None]
  - PARAESTHESIA [None]
  - PALPITATIONS [None]
  - HYPERHIDROSIS [None]
  - CHEST PAIN [None]
